FAERS Safety Report 4876093-4 (Version None)
Quarter: 2006Q1

REPORT INFORMATION
  Report Type: 
  Country: None (occurrence: None)
  Receive Date: 20060110
  Receipt Date: 20060103
  Transmission Date: 20060701
  Serious: Yes (Hospitalization, Other)
  Sender: FDA-Public Use
  Company Number: US-JNJFOC-20050905729

PATIENT
  Sex: Female
  Weight: 118.84 kg

DRUGS (3)
  1. REMICADE [Suspect]
     Route: 042
  2. REMICADE [Suspect]
     Indication: CROHN'S DISEASE
     Route: 042
  3. PREDNISONE [Concomitant]

REACTIONS (3)
  - CONSTIPATION [None]
  - HAEMORRHAGE [None]
  - LUPUS-LIKE SYNDROME [None]
